FAERS Safety Report 16456308 (Version 1)
Quarter: 2019Q2

REPORT INFORMATION
  Report Type: Spontaneous
  Country: CH (occurrence: CH)
  Receive Date: 20190620
  Receipt Date: 20190620
  Transmission Date: 20190711
  Serious: Yes (Hospitalization, Other)
  Sender: FDA-Public Use
  Company Number: CH-TEVA-2019-CH-1064179

PATIENT
  Sex: Female

DRUGS (6)
  1. ZOLPIDEM [Suspect]
     Active Substance: ZOLPIDEM\ZOLPIDEM TARTRATE
     Indication: INSOMNIA
     Dosage: 7 TIMES A DAY
     Route: 065
  2. ZOLPIDEM [Suspect]
     Active Substance: ZOLPIDEM\ZOLPIDEM TARTRATE
     Indication: INSOMNIA
     Dosage: 100 MILLIGRAM DAILY;
     Route: 065
  3. ZOLPIDEM [Suspect]
     Active Substance: ZOLPIDEM\ZOLPIDEM TARTRATE
     Indication: INSOMNIA
     Dosage: 10 MILLIGRAM DAILY;
     Route: 065
  4. ZOLPIDEM [Suspect]
     Active Substance: ZOLPIDEM\ZOLPIDEM TARTRATE
     Indication: INSOMNIA
     Dosage: 25 MILLIGRAM DAILY;
     Route: 065
  5. ZOLPIDEM [Suspect]
     Active Substance: ZOLPIDEM\ZOLPIDEM TARTRATE
     Indication: INSOMNIA
     Dosage: 160 MILLIGRAM DAILY;
     Route: 065
  6. ZOLPIDEM [Suspect]
     Active Substance: ZOLPIDEM\ZOLPIDEM TARTRATE
     Indication: INSOMNIA
     Dosage: 70 MILLIGRAM DAILY;
     Route: 065

REACTIONS (19)
  - Cognitive disorder [Recovering/Resolving]
  - Mania [Recovered/Resolved]
  - Agitation [Recovered/Resolved]
  - Delusion of grandeur [Recovered/Resolved]
  - Psychotic symptom [Recovered/Resolved]
  - Suicidal behaviour [Recovered/Resolved]
  - Hypersexuality [Recovered/Resolved]
  - Anosognosia [Recovered/Resolved]
  - Psychomotor hyperactivity [Recovered/Resolved]
  - Aggression [Recovered/Resolved]
  - Withdrawal syndrome [Recovered/Resolved]
  - Tachyphrenia [Recovered/Resolved]
  - Irritability [Recovered/Resolved]
  - Disinhibition [Recovered/Resolved]
  - Persecutory delusion [Recovering/Resolving]
  - Drug abuse [Recovering/Resolving]
  - Disturbance in social behaviour [Recovered/Resolved]
  - Persistent depressive disorder [Recovered/Resolved]
  - Drug dependence [Recovered/Resolved]
